FAERS Safety Report 4396216-3 (Version None)
Quarter: 2004Q3

REPORT INFORMATION
  Report Type: 
  Country: None (occurrence: None)
  Receive Date: 20040708
  Receipt Date: 20040630
  Transmission Date: 20050211
  Serious: Yes (Life-Threatening, Hospitalization)
  Sender: FDA-Public Use
  Company Number: TCI2003A03824

PATIENT
  Age: 56 Year
  Sex: Male

DRUGS (25)
  1. ACTOS [Suspect]
     Indication: DIABETES MELLITUS NON-INSULIN-DEPENDENT
     Dosage: 30 MG (30 MG, 1 D); PER ORAL (SEE IMAGE)
     Route: 048
     Dates: start: 20030318, end: 20030802
  2. ACTOS [Suspect]
     Indication: DIABETES MELLITUS NON-INSULIN-DEPENDENT
     Dosage: 30 MG (30 MG, 1 D); PER ORAL (SEE IMAGE)
     Route: 048
     Dates: start: 20030930
  3. GLUCOBAY [Suspect]
     Indication: DIABETES MELLITUS NON-INSULIN-DEPENDENT
     Dosage: 300 MG (300 MG, 1 D); PER ORAL
     Route: 048
     Dates: start: 20020326, end: 20030802
  4. BASEN (VOGLIBOSE) [Concomitant]
  5. BLOPRESS (CANDESARTAN CILEXETIL) [Concomitant]
  6. TAKEPRON OD TABLETS 15 (LANSOPRAZOLE) [Concomitant]
  7. GLYBURIDE [Concomitant]
  8. CIBENZOLINE SUCCINATE [Concomitant]
  9. BENIDIPINE HYDROCHLORIDE [Concomitant]
  10. METILDIGOXIN [Concomitant]
  11. ASPIRIN [Concomitant]
  12. CIMETIDINE [Concomitant]
  13. DOXAZOSIN MESYLATE [Concomitant]
  14. NICORANDIL [Concomitant]
  15. METFORMIN HCL [Concomitant]
  16. VALSARTAN [Concomitant]
  17. DILTIAZEM HYDROCHLORIDE [Concomitant]
  18. CARVEDILOL [Concomitant]
  19. BUFFERIN [Concomitant]
  20. NIZATIDINE [Concomitant]
  21. PRAZOSIN HYDROCHLORIDE [Concomitant]
  22. EPALRESTAT [Concomitant]
  23. AMLODIPINE BESYLATE [Concomitant]
  24. TROXIPIDE [Concomitant]
  25. LOSARTAN POTASSIUM [Concomitant]

REACTIONS (5)
  - BUNDLE BRANCH BLOCK RIGHT [None]
  - FALL [None]
  - GASTRIC ULCER [None]
  - HAEMATEMESIS [None]
  - SHOCK HAEMORRHAGIC [None]
